FAERS Safety Report 16944113 (Version 1)
Quarter: 2019Q4

REPORT INFORMATION
  Report Type: Spontaneous
  Country: GR (occurrence: GR)
  Receive Date: 20191022
  Receipt Date: 20191022
  Transmission Date: 20200122
  Serious: Yes (Death, Other)
  Sender: FDA-Public Use
  Company Number: GR-TEVA-2019-GR-1125654

PATIENT
  Age: 51 Year
  Sex: Male

DRUGS (4)
  1. SUNITINIB [Suspect]
     Active Substance: SUNITINIB
     Indication: METASTATIC RENAL CELL CARCINOMA
     Route: 048
     Dates: start: 201210, end: 201304
  2. TEMSIROLIMUS. [Concomitant]
     Active Substance: TEMSIROLIMUS
     Route: 065
     Dates: start: 201305, end: 201310
  3. ZOLEDRONIC ACID [Suspect]
     Active Substance: ZOLEDRONIC ACID
     Dosage: RECEIVED 2 INJECTIONS
     Route: 065
     Dates: start: 201307
  4. BEVACIZUMAB. [Suspect]
     Active Substance: BEVACIZUMAB
     Indication: METASTATIC RENAL CELL CARCINOMA
     Route: 065
     Dates: start: 201305, end: 201310

REACTIONS (3)
  - Osteonecrosis of jaw [Unknown]
  - Periodontal disease [Not Recovered/Not Resolved]
  - Jaw fracture [Unknown]
